FAERS Safety Report 23361912 (Version 1)
Quarter: 2024Q1

REPORT INFORMATION
  Report Type: Spontaneous
  Country: SK (occurrence: SK)
  Receive Date: 20240103
  Receipt Date: 20240103
  Transmission Date: 20240410
  Serious: Yes (Other)
  Sender: FDA-Public Use
  Company Number: SK-FreseniusKabi-FK202308748

PATIENT
  Age: 57 Year
  Sex: Female

DRUGS (4)
  1. OXALIPLATIN [Suspect]
     Active Substance: OXALIPLATIN
     Indication: Pancreatic carcinoma stage II
     Dosage: MFOLFIRINOX (12 CYCLES)
  2. LEUCOVORIN [Suspect]
     Active Substance: LEUCOVORIN\LEUCOVORIN CALCIUM
     Indication: Pancreatic carcinoma stage II
     Dosage: MFOLFIRINOX (12 CYCLES)
  3. FLUOROURACIL [Suspect]
     Active Substance: FLUOROURACIL
     Indication: Pancreatic carcinoma stage II
     Dosage: MFOLFIRINOX (12 CYCLES)
  4. IRINOTECAN [Suspect]
     Active Substance: IRINOTECAN
     Indication: Pancreatic carcinoma stage II
     Dosage: MFOLFIRINOX (12 CYCLES)

REACTIONS (2)
  - Neuropathy peripheral [Unknown]
  - Off label use [Unknown]
